FAERS Safety Report 6661258-1 (Version None)
Quarter: 2010Q1

REPORT INFORMATION
  Report Type: 
  Country: None (occurrence: None)
  Receive Date: 20100331
  Receipt Date: 20100323
  Transmission Date: 20100710
  Serious: Yes (Death, Hospitalization, Other)
  Sender: FDA-Public Use
  Company Number: US-AMGEN-QUU401652

PATIENT
  Sex: Female

DRUGS (7)
  1. ARANESP [Suspect]
     Indication: DRUG USE FOR UNKNOWN INDICATION
     Route: 065
  2. REGLAN [Concomitant]
  3. DIGOXIN [Concomitant]
  4. UNSPECIFIED STEROIDS [Concomitant]
  5. HEPARIN [Concomitant]
  6. COUMADIN [Concomitant]
  7. DEXTROSE SALINE [Concomitant]

REACTIONS (9)
  - ACINETOBACTER INFECTION [None]
  - ASPIRATION [None]
  - BACTERIAL TOXAEMIA [None]
  - DECUBITUS ULCER [None]
  - EXFOLIATIVE RASH [None]
  - NOSOCOMIAL INFECTION [None]
  - PERNICIOUS ANAEMIA [None]
  - VOMITING [None]
  - WITHDRAWAL OF LIFE SUPPORT [None]
